FAERS Safety Report 9466538 (Version 3)
Quarter: 2013Q4

REPORT INFORMATION
  Report Type: Spontaneous
  Country: US (occurrence: US)
  Receive Date: 20130820
  Receipt Date: 20131127
  Transmission Date: 20140711
  Serious: Yes (Hospitalization)
  Sender: FDA-Public Use
  Company Number: US-JNJFOC-20130809104

PATIENT
  Age: 80 Year
  Sex: Female
  Weight: 71.85 kg

DRUGS (2)
  1. XARELTO [Suspect]
     Indication: THROMBOSIS PROPHYLAXIS
     Route: 048
  2. XARELTO [Suspect]
     Indication: BONE OPERATION
     Route: 048

REACTIONS (2)
  - Adrenal insufficiency [Recovering/Resolving]
  - Adrenal haemorrhage [Recovering/Resolving]
